FAERS Safety Report 21098310 (Version 1)
Quarter: 2022Q3

REPORT INFORMATION
  Report Type: Spontaneous
  Country: US (occurrence: US)
  Receive Date: 20220719
  Receipt Date: 20220719
  Transmission Date: 20221027
  Serious: No
  Sender: FDA-Public Use
  Company Number: US-STRIDES ARCOLAB LIMITED-2021SP029598

PATIENT
  Age: 69 Year
  Sex: Male
  Weight: 78.005 kg

DRUGS (9)
  1. MYCOPHENOLATE MOFETIL [Suspect]
     Active Substance: MYCOPHENOLATE MOFETIL
     Indication: Polymyositis
     Dosage: UNK, (WEST -WARD PHARMACEUTICALS)
     Route: 065
  2. MYCOPHENOLATE MOFETIL [Suspect]
     Active Substance: MYCOPHENOLATE MOFETIL
     Dosage: 4 TABLETS, PER DAY
     Route: 065
  3. MYCOPHENOLATE MOFETIL [Suspect]
     Active Substance: MYCOPHENOLATE MOFETIL
     Dosage: 2 TABLETS, AT BED TIME, (STRIDES PHARMA INC.)
     Route: 048
     Dates: start: 20211010, end: 20211031
  4. MYCOPHENOLATE MOFETIL [Suspect]
     Active Substance: MYCOPHENOLATE MOFETIL
     Dosage: UNK, (STRIDES PHARMA INC.)
     Route: 065
  5. PREDNISONE [Concomitant]
     Active Substance: PREDNISONE
     Indication: Polymyositis
     Dosage: 10 MILLIGRAM
     Route: 065
  6. PREDNISONE [Concomitant]
     Active Substance: PREDNISONE
     Dosage: 5 MILLIGRAM, AT BED TIME
     Route: 065
  7. CENTRUM SILVER [ASCORBIC ACID;CALCIUM;MINERALS NOS;RETINOL;TOCOPHERYL [Concomitant]
     Indication: Supplementation therapy
     Dosage: UNK, 1 PILL IN A DAY
     Route: 065
  8. ULTRA CO Q10 [Concomitant]
     Indication: Supplementation therapy
     Dosage: UNK, QD
     Route: 065
  9. MEGARED OMEGA 3 + MULTIVITAMIN [Concomitant]
     Indication: Supplementation therapy
     Dosage: UNK, QD
     Route: 065

REACTIONS (11)
  - Abnormal dreams [Recovered/Resolved]
  - Fatigue [Recovered/Resolved]
  - Balance disorder [Recovered/Resolved]
  - Product substitution issue [Unknown]
  - Malaise [Recovered/Resolved]
  - Tremor [Recovered/Resolved]
  - Asthenia [Recovered/Resolved]
  - Muscular weakness [Recovered/Resolved]
  - Confusional state [Recovered/Resolved]
  - Headache [Recovered/Resolved]
  - Off label use [Unknown]

NARRATIVE: CASE EVENT DATE: 20211001
